FAERS Safety Report 22630351 (Version 1)
Quarter: 2023Q2

REPORT INFORMATION
  Report Type: Spontaneous
  Country: NL (occurrence: NL)
  Receive Date: 20230622
  Receipt Date: 20230622
  Transmission Date: 20230722
  Serious: Yes (Life-Threatening, Hospitalization)
  Sender: FDA-Public Use
  Company Number: None

PATIENT
  Sex: Female
  Weight: 65 kg

DRUGS (14)
  1. CAPECITABINE [Suspect]
     Active Substance: CAPECITABINE
     Indication: Gastric cancer
     Dosage: 300 MILLIGRAM DAILY; 2DD150MG ,TABLET FO 500MG / BRAND NAME NOT SPECIFIED
     Dates: start: 20230516, end: 20230521
  2. CAPECITABINE [Suspect]
     Active Substance: CAPECITABINE
     Dosage: 1500 MILLIGRAM DAILY; 3DD500MG,TABLET FO 500MG / BRAND NAME NOT SPECIFIED
     Dates: start: 20230516, end: 20230521
  3. OXALIPLATIN [Suspect]
     Active Substance: OXALIPLATIN
     Indication: Gastric cancer
     Dosage: UNKNOWN, BRAND NAME NOT SPECIFIED
     Dates: start: 20230516, end: 20230521
  4. ROSUVASTATIN [Concomitant]
     Active Substance: ROSUVASTATIN
     Indication: Product used for unknown indication
     Dosage: BRAND NAME NOT SPECIFIED
  5. ASPIRIN [Concomitant]
     Active Substance: ASPIRIN
     Indication: Product used for unknown indication
  6. SPIRONOLACTONE [Concomitant]
     Active Substance: SPIRONOLACTONE
     Indication: Product used for unknown indication
     Dosage: BRAND NAME NOT SPECIFIED
  7. TELMISARTAN [Concomitant]
     Active Substance: TELMISARTAN
     Indication: Product used for unknown indication
     Dosage: BRAND NAME NOT SPECIFIED
  8. BISOPROLOL [Concomitant]
     Active Substance: BISOPROLOL
     Indication: Product used for unknown indication
     Dosage: BRAND NAME NOT SPECIFIED
  9. TACAL D3 [Concomitant]
     Indication: Product used for unknown indication
     Dosage: 1.25G (GRAM)/800 UNITS, CHEWABLE TB 1.25G/800IE (500MG CA) / TACAL D3 CHEWABLE TABLET 500MG/800IE OR
  10. BARNIDIPINE HYDROCHLORIDE [Concomitant]
     Active Substance: BARNIDIPINE HYDROCHLORIDE
     Indication: Product used for unknown indication
  11. ONDANSETRON [Concomitant]
     Active Substance: ONDANSETRON
     Indication: Product used for unknown indication
     Dosage: BRAND NAME NOT SPECIFIED
  12. METOCLOPRAMIDE [Concomitant]
     Active Substance: METOCLOPRAMIDE
     Indication: Product used for unknown indication
     Dosage: BRAND NAME NOT SPECIFIED
  13. DEXAMETHASONE [Concomitant]
     Active Substance: DEXAMETHASONE
     Indication: Product used for unknown indication
     Dosage: BRAND NAME NOT SPECIFIED
  14. AMOXICILLIN\CLARITHROMYCIN\PANTOPRAZOLE [Concomitant]
     Active Substance: AMOXICILLIN\CLARITHROMYCIN\PANTOPRAZOLE
     Indication: Product used for unknown indication
     Dosage: 1000/500/40 MG (MILLIGRAMS); AMOXICIL/CLARITRO/PANTOPRA (PANCLAMOX) / PANCLAMOX COMBINATION PACK

REACTIONS (1)
  - Posterior reversible encephalopathy syndrome [Recovering/Resolving]
